FAERS Safety Report 12716488 (Version 1)
Quarter: 2016Q3

REPORT INFORMATION
  Report Type: Report from Study
  Country: US (occurrence: US)
  Receive Date: 20160906
  Receipt Date: 20160906
  Transmission Date: 20161109
  Serious: Yes (Other)
  Sender: FDA-Public Use
  Company Number: US-ARIAD-2013US002340

PATIENT

DRUGS (12)
  1. ICLUSIG [Suspect]
     Active Substance: PONATINIB
     Indication: ACUTE LYMPHOCYTIC LEUKAEMIA (IN REMISSION)
     Dosage: UNK
     Route: 048
     Dates: start: 201303
  2. SOLU-CORTEF [Concomitant]
     Active Substance: HYDROCORTISONE SODIUM SUCCINATE
     Indication: ANAPHYLACTIC REACTION
  3. ADRENALIN [Concomitant]
     Active Substance: EPINEPHRINE
     Indication: THROAT TIGHTNESS
  4. INSULIN REGULAR [Concomitant]
     Active Substance: INSULIN NOS
     Indication: DIABETES MELLITUS
     Dosage: SLIDING SCALE
  5. SOLU-CORTEF [Concomitant]
     Active Substance: HYDROCORTISONE SODIUM SUCCINATE
     Indication: HYPERSENSITIVITY
     Dosage: 100 MG QD, PRN
     Dates: start: 20130618, end: 20140514
  6. ICLUSIG [Suspect]
     Active Substance: PONATINIB
     Dosage: 30 MG, QD
     Route: 048
     Dates: start: 20130618
  7. BENADRYL [Concomitant]
     Active Substance: DIPHENHYDRAMINE HYDROCHLORIDE
     Indication: ANAPHYLACTIC REACTION
  8. BENADRYL [Concomitant]
     Active Substance: DIPHENHYDRAMINE HYDROCHLORIDE
     Indication: HYPERSENSITIVITY
     Dosage: 50 MG, PRN SINGLE PUSH
     Dates: start: 20130618, end: 20140514
  9. ADRENALIN [Concomitant]
     Active Substance: EPINEPHRINE
     Indication: HYPERSENSITIVITY
     Dosage: 0.03 MG (1:1,000), PRN
     Route: 058
     Dates: start: 20130618, end: 20140514
  10. ADRENALIN [Concomitant]
     Active Substance: EPINEPHRINE
     Indication: DYSPNOEA
  11. ADRENALIN [Concomitant]
     Active Substance: EPINEPHRINE
     Indication: SWELLING FACE
  12. ADRENALIN [Concomitant]
     Active Substance: EPINEPHRINE
     Indication: SWOLLEN TONGUE

REACTIONS (13)
  - Constipation [Unknown]
  - Vomiting [Unknown]
  - Dyspnoea [Unknown]
  - Cataract operation [Unknown]
  - Malaise [Unknown]
  - Nausea [Recovered/Resolved]
  - Chest pain [Recovered/Resolved]
  - Dizziness [Unknown]
  - Blood glucose increased [Unknown]
  - Dry mouth [Unknown]
  - Fall [Unknown]
  - Fatigue [Recovered/Resolved]
  - Headache [Recovered/Resolved]
